FAERS Safety Report 6663918-5 (Version None)
Quarter: 2010Q2

REPORT INFORMATION
  Report Type: 
  Country: None (occurrence: None)
  Receive Date: 20100401
  Receipt Date: 20100322
  Transmission Date: 20101027
  Serious: Yes (Hospitalization, Other)
  Sender: FDA-Public Use
  Company Number: DE-BRISTOL-MYERS SQUIBB COMPANY-15028426

PATIENT
  Age: 31 Year
  Sex: Female

DRUGS (4)
  1. EFAVIRENZ [Suspect]
     Indication: ANTIRETROVIRAL THERAPY
     Dates: start: 20070301
  2. CALCIUM CARBONATE + COLECALCIFEROL [Suspect]
     Indication: OSTEOPOROSIS PROPHYLAXIS
     Dosage: 1DF:500MG+25MICROGRAM(=100IU) CALCIUM:500MG COLECALCIFEROL:25MICROG(=100IU)
  3. TENOFOVIR DISOPROXIL FUMARATE [Suspect]
     Indication: ANTIRETROVIRAL THERAPY
     Dosage: DOSE REDUCED TO TWICE WEEKLY
     Dates: start: 20070301
  4. EMTRICITABINE [Suspect]
     Indication: ANTIRETROVIRAL THERAPY
     Dosage: DOSE REDUCED TO TWICE WEEKLY
     Dates: start: 20070301

REACTIONS (3)
  - HYPERCALCAEMIA [None]
  - IMMUNE RECONSTITUTION SYNDROME [None]
  - RENAL FAILURE ACUTE [None]
